FAERS Safety Report 4330754-4 (Version None)
Quarter: 2004Q1

REPORT INFORMATION
  Report Type: 
  Country: None (occurrence: None)
  Receive Date: 20040331
  Receipt Date: 20040318
  Transmission Date: 20041129
  Serious: Yes (Other)
  Sender: FDA-Public Use
  Company Number: 2004-DE-01341GD

PATIENT
  Sex: Male

DRUGS (5)
  1. IPRATROPIUM BROMIDE [Suspect]
     Indication: OBSTRUCTIVE AIRWAYS DISORDER
     Dosage: NR
  2. PREDNISONE TAB [Suspect]
     Indication: OBSTRUCTIVE AIRWAYS DISORDER
     Dosage: 2MG/KG
  3. BETA2 -AGONISTS [Concomitant]
     Indication: OBSTRUCTIVE AIRWAYS DISORDER
     Dosage: NR
  4. PREDNISONE TAB [Suspect]
     Indication: OBSTRUCTIVE AIRWAYS DISORDER
     Dosage: 2MG/KG
  5. BETA2-AGONISTS [Concomitant]
     Indication: OBSTRUCTIVE AIRWAYS DISORDER
     Dosage: NR

REACTIONS (2)
  - BRONCHIOLITIS [None]
  - DRUG INEFFECTIVE [None]
